FAERS Safety Report 19159241 (Version 1)
Quarter: 2021Q2

REPORT INFORMATION
  Report Type: Other
  Country: CN (occurrence: CN)
  Receive Date: 20210420
  Receipt Date: 20210420
  Transmission Date: 20210717
  Serious: Yes (Other)
  Sender: FDA-Public Use
  Company Number: CN-ROCHE-2806761

PATIENT

DRUGS (2)
  1. CISPLATIN. [Suspect]
     Active Substance: CISPLATIN
     Indication: MALIGNANT PLEURAL EFFUSION
     Route: 038
  2. BEVACIZUMAB. [Suspect]
     Active Substance: BEVACIZUMAB
     Indication: MALIGNANT PLEURAL EFFUSION
     Route: 038

REACTIONS (9)
  - Functional gastrointestinal disorder [Unknown]
  - Off label use [Unknown]
  - Asthenia [Recovering/Resolving]
  - Vomiting [Recovering/Resolving]
  - Hypertension [Recovering/Resolving]
  - Myelosuppression [Unknown]
  - Nausea [Recovering/Resolving]
  - Proteinuria [Recovering/Resolving]
  - Haemorrhage [Recovering/Resolving]
